FAERS Safety Report 7611821-6 (Version None)
Quarter: 2011Q3

REPORT INFORMATION
  Report Type: 
  Country: None (occurrence: None)
  Receive Date: 20110715
  Receipt Date: 20110606
  Transmission Date: 20111222
  Serious: Yes (Life-Threatening, Other)
  Sender: FDA-Public Use
  Company Number: US-BAXTER-2010BH003543

PATIENT
  Age: 59 Year
  Sex: Male
  Weight: 88 kg

DRUGS (18)
  1. FENTANYL CITRATE [Suspect]
     Indication: ANGIOPLASTY
     Route: 042
     Dates: start: 20080513, end: 20080513
  2. ASPIRIN [Concomitant]
     Indication: PRODUCT USED FOR UNKNOWN INDICATION
     Route: 065
  3. HEPARIN SODIUM INJECTION [Suspect]
     Route: 042
     Dates: start: 20080512, end: 20080512
  4. ONDANSETRON [Concomitant]
     Indication: PRODUCT USED FOR UNKNOWN INDICATION
     Route: 065
  5. HEPARIN SODIUM INJECTION [Suspect]
     Indication: ANGIOPLASTY
     Route: 042
     Dates: start: 20080512, end: 20080512
  6. PLAVIX [Suspect]
     Indication: ANGIOPLASTY
     Route: 042
     Dates: start: 20080512, end: 20080512
  7. HYDROCHLOROTHIAZIDE [Concomitant]
     Indication: PRODUCT USED FOR UNKNOWN INDICATION
     Route: 065
  8. LISINOPRIL [Concomitant]
     Indication: PRODUCT USED FOR UNKNOWN INDICATION
     Route: 065
  9. MORPHINE [Concomitant]
     Indication: PRODUCT USED FOR UNKNOWN INDICATION
     Route: 065
  10. HEPARIN SODIUM INJECTION [Suspect]
     Route: 042
     Dates: start: 20080512, end: 20080512
  11. INTEGRILIN [Suspect]
     Indication: ANGIOPLASTY
     Route: 042
     Dates: start: 20080512, end: 20080512
  12. HEPARIN SODIUM INJECTION [Suspect]
     Indication: CORONARY ARTERIAL STENT INSERTION
     Route: 042
     Dates: start: 20080512, end: 20080512
  13. SIMVASTATIN [Concomitant]
     Indication: PRODUCT USED FOR UNKNOWN INDICATION
     Route: 065
  14. NITROGLYCERIN [Concomitant]
     Indication: PRODUCT USED FOR UNKNOWN INDICATION
     Route: 065
  15. MIDAZOLAM HCL [Suspect]
     Indication: ANGIOPLASTY
     Route: 042
     Dates: start: 20080512, end: 20080512
  16. METOPROLOL TARTRATE [Concomitant]
     Indication: PRODUCT USED FOR UNKNOWN INDICATION
     Route: 065
  17. LOVENOX [Concomitant]
     Indication: PRODUCT USED FOR UNKNOWN INDICATION
     Route: 065
  18. ACETAMINOPHEN [Concomitant]
     Indication: PRODUCT USED FOR UNKNOWN INDICATION
     Route: 065

REACTIONS (19)
  - RESPIRATORY DISTRESS [None]
  - PNEUMONIA [None]
  - HEADACHE [None]
  - AORTIC ANEURYSM [None]
  - MUSCLE SPASMS [None]
  - DRUG HYPERSENSITIVITY [None]
  - INTRACRANIAL ANEURYSM [None]
  - BACK PAIN [None]
  - URINARY RETENTION [None]
  - CARDIAC ARREST [None]
  - PNEUMOTHORAX [None]
  - DEEP VEIN THROMBOSIS [None]
  - SINUS BRADYCARDIA [None]
  - HAEMORRHAGIC STROKE [None]
  - MENTAL STATUS CHANGES [None]
  - HYPOTENSION [None]
  - SWOLLEN TONGUE [None]
  - NAUSEA [None]
  - PHARYNGEAL OEDEMA [None]
